FAERS Safety Report 4626629-3 (Version None)
Quarter: 2005Q1

REPORT INFORMATION
  Report Type: 
  Country: None (occurrence: None)
  Receive Date: 20050330
  Receipt Date: 20050316
  Transmission Date: 20050727
  Serious: Yes (Other)
  Sender: FDA-Public Use
  Company Number: SUSI-2005-00203

PATIENT
  Age: 28 Year
  Sex: Female

DRUGS (2)
  1. CARBATROL [Suspect]
     Indication: CONVULSION
  2. LEXAPRO [Suspect]
     Indication: ANXIETY
     Dosage: 10 MG, 1X/DAY, QD
     Dates: start: 20050119

REACTIONS (6)
  - ANXIETY [None]
  - DEPRESSION [None]
  - DIPLOPIA [None]
  - DRUG INTERACTION [None]
  - HYPERHIDROSIS [None]
  - VISION BLURRED [None]
